FAERS Safety Report 8257254-3 (Version None)
Quarter: 2012Q2

REPORT INFORMATION
  Report Type: 
  Country: None (occurrence: None)
  Receive Date: 20120403
  Receipt Date: 20120325
  Transmission Date: 20120825
  Serious: Yes (Death, Hospitalization)
  Sender: FDA-Public Use
  Company Number: JP-AMGEN-JPNCT2011053920

PATIENT
  Age: 72 Year
  Sex: Male
  Weight: 69 kg

DRUGS (24)
  1. PANITUMUMAB [Suspect]
     Indication: COLORECTAL CANCER
     Dosage: 400 MG, Q2WK
     Route: 041
     Dates: start: 20110915, end: 20110915
  2. LEVOLEUCOVORIN CALCIUM [Concomitant]
     Indication: COLORECTAL CANCER
     Dosage: 300 MG, Q2WK
     Route: 041
     Dates: start: 20090511
  3. FLUOROURACIL [Concomitant]
     Indication: COLORECTAL CANCER
     Dosage: 3500 MG, Q2WK
     Route: 041
     Dates: start: 20090511
  4. FLUOROURACIL [Concomitant]
     Dosage: 3500 MG, Q2WK
     Route: 041
     Dates: end: 20110803
  5. HYDROCORTISONE SODIUM SUCCINATE [Concomitant]
     Indication: PROPHYLAXIS
     Dosage: UNK
     Route: 042
     Dates: start: 20090801, end: 20110817
  6. MEROPENEM [Suspect]
     Indication: INTERSTITIAL LUNG DISEASE
     Dosage: 1000 MG, UNK
     Route: 041
     Dates: start: 20110926
  7. ERYTHROCIN [Suspect]
     Dosage: 1500 MG, UNK
     Route: 041
     Dates: start: 20110926, end: 20110930
  8. VANCOMYCIN [Suspect]
     Dosage: 1000 MG, UNK
     Route: 041
     Dates: start: 20111004, end: 20111006
  9. LEVOLEUCOVORIN CALCIUM [Concomitant]
     Dosage: 300 MG, Q2WK
     Route: 041
     Dates: end: 20110803
  10. DEXAMETHASONE SODIUM PHOSPHATE [Concomitant]
     Route: 042
  11. PYDOXAL [Concomitant]
     Indication: NEUROPATHY PERIPHERAL
     Dosage: 10 MG, UNK
     Route: 048
     Dates: start: 20100101
  12. MAGMITT [Concomitant]
     Indication: CONSTIPATION
     Dosage: 500 MG, UNK
     Route: 048
     Dates: start: 20100101
  13. MINOCYCLINE HYDROCHLORIDE [Suspect]
     Indication: PROPHYLAXIS
     Dosage: 100 MG, BID
     Route: 048
     Dates: start: 20110916, end: 20110925
  14. OXALIPLATIN [Concomitant]
     Indication: COLORECTAL CANCER
     Dosage: 100 MG, Q2WK
     Route: 041
     Dates: start: 20090511, end: 20110803
  15. FLUOROURACIL [Concomitant]
     Dosage: 3500 MG, UNK
     Route: 041
     Dates: start: 20100721, end: 20101027
  16. FLUOROURACIL [Concomitant]
     Dosage: 3500 MG, UNK
     Route: 041
     Dates: start: 20110915, end: 20110915
  17. LEVOLEUCOVORIN CALCIUM [Concomitant]
     Dosage: 300 MG, UNK
     Route: 041
     Dates: start: 20110818
  18. LEVOLEUCOVORIN CALCIUM [Concomitant]
     Dosage: 300 MG, UNK
     Route: 041
     Dates: start: 20100721, end: 20101027
  19. LEVOLEUCOVORIN CALCIUM [Concomitant]
     Dosage: 300 MG, UNK
     Route: 041
     Dates: start: 20110915, end: 20110915
  20. RABEPRAZOLE SODIUM [Concomitant]
     Indication: GASTRIC ULCER
     Dosage: 10 MG, UNK
     Route: 048
     Dates: start: 20100101
  21. FLUOROURACIL [Concomitant]
     Dosage: 3500 MG, UNK
     Route: 041
     Dates: start: 20110818
  22. WARFARIN SODIUM [Concomitant]
     Indication: PROPHYLAXIS
     Dosage: 2 MG, UNK
     Route: 048
     Dates: start: 20100101
  23. ZOPICOOL [Concomitant]
     Dosage: 7.5 MG, UNK
     Route: 048
     Dates: start: 20100101
  24. ERBITUX [Suspect]
     Indication: COLORECTAL CANCER
     Dosage: 350 MG, UNK
     Route: 041
     Dates: start: 20110817, end: 20110817

REACTIONS (1)
  - INTERSTITIAL LUNG DISEASE [None]
